FAERS Safety Report 10247149 (Version 2)
Quarter: 2015Q3

REPORT INFORMATION
  Report Type: Spontaneous
  Country: US (occurrence: US)
  Receive Date: 20140619
  Receipt Date: 20150719
  Transmission Date: 20151125
  Serious: Yes (Other)
  Sender: FDA-Public Use
  Company Number: US-SA-2014SA077506

PATIENT
  Age: 78 Year
  Sex: Female

DRUGS (1)
  1. PLAVIX [Suspect]
     Active Substance: CLOPIDOGREL BISULFATE
     Indication: CEREBROVASCULAR ACCIDENT PROPHYLAXIS
     Route: 048
     Dates: start: 2001

REACTIONS (7)
  - Multiple injuries [Unknown]
  - Memory impairment [Unknown]
  - Impaired driving ability [Unknown]
  - Cerebrovascular accident [Unknown]
  - Cognitive disorder [Unknown]
  - Cerebral haemorrhage [Unknown]
  - Haemorrhage [Unknown]

NARRATIVE: CASE EVENT DATE: 200210
